FAERS Safety Report 4953139-6 (Version None)
Quarter: 2006Q1

REPORT INFORMATION
  Report Type: 
  Country: None (occurrence: None)
  Receive Date: 20060321
  Receipt Date: 20060221
  Transmission Date: 20060701
  Serious: Yes (Other)
  Sender: FDA-Public Use
  Company Number: 2006-PI083

PATIENT
  Age: 69 Year
  Sex: Male
  Weight: 78.9259 kg

DRUGS (1)
  1. CHLORAPREP WITH TINT [Suspect]
     Indication: PREOPERATIVE CARE
     Dosage: ONCE, TOPICAL
     Route: 061

REACTIONS (3)
  - PHARMACEUTICAL PRODUCT COMPLAINT [None]
  - PROCEDURAL COMPLICATION [None]
  - WRONG TECHNIQUE IN DRUG USAGE PROCESS [None]
